FAERS Safety Report 4539550-6 (Version None)
Quarter: 2004Q4

REPORT INFORMATION
  Report Type: 
  Country: None (occurrence: None)
  Receive Date: 20041223
  Receipt Date: 20041214
  Transmission Date: 20050328
  Serious: Yes (Hospitalization)
  Sender: FDA-Public Use
  Company Number: 02100-JPN-04-0340

PATIENT
  Age: 35 Year
  Sex: Male

DRUGS (4)
  1. CILOSTAZOL [Suspect]
     Indication: THROMBOSIS PROPHYLAXIS
     Dosage: 100 MG, ORAL
     Route: 048
     Dates: start: 20030801, end: 20041101
  2. FAMOTIDINE [Suspect]
     Dosage: ORAL
     Route: 048
     Dates: start: 20030801, end: 20041101
  3. LEVOFLOXACIN [Suspect]
     Dosage: ORAL
     Route: 048
     Dates: start: 20041001, end: 20041001
  4. PREDNISOLONE [Concomitant]

REACTIONS (1)
  - NEPHRITIS INTERSTITIAL [None]
